FAERS Safety Report 7129508 (Version 3)
Quarter: 2013Q2

REPORT INFORMATION
  Report Type: Spontaneous
  Country: US (occurrence: US)
  Receive Date: 20090924
  Receipt Date: 20130409
  Transmission Date: 20140414
  Serious: Yes (Other)
  Sender: FDA-Public Use
  Company Number: US-ASTRAZENECA-2009UW21056

PATIENT
  Age: 19 Year
  Sex: Male

DRUGS (5)
  1. SEROQUEL [Suspect]
     Route: 048
     Dates: start: 20020725, end: 20020909
  2. SEROQUEL [Suspect]
     Route: 048
     Dates: start: 20020909, end: 20020923
  3. SEROQUEL [Suspect]
     Route: 048
     Dates: start: 20020923, end: 20030812
  4. SEROQUEL [Suspect]
     Route: 048
     Dates: start: 20030812, end: 20040325
  5. SEROQUEL [Suspect]
     Route: 048
     Dates: start: 20101005

REACTIONS (4)
  - Pancreatitis [Unknown]
  - Diabetic coma [Unknown]
  - Pancreatic necrosis [Unknown]
  - Type 2 diabetes mellitus [Unknown]
